FAERS Safety Report 10551938 (Version 1)
Quarter: 2014Q4

REPORT INFORMATION
  Report Type: Spontaneous
  Country: US (occurrence: None)
  Receive Date: 20141027
  Receipt Date: 20141027
  Transmission Date: 20150529
  Serious: Yes (Hospitalization)
  Sender: FDA-Public Use
  Company Number: 2590358

PATIENT
  Age: 61 Year
  Sex: Male

DRUGS (4)
  1. TRICHLORMETHIAZIDE [Suspect]
     Active Substance: TRICHLORMETHIAZIDE
     Indication: CARDIAC FAILURE CONGESTIVE
  2. METHYL-DIGOXIN [Concomitant]
  3. FUROSEMIDE. [Suspect]
     Active Substance: FUROSEMIDE
     Indication: CARDIAC FAILURE CONGESTIVE
  4. LOSARTAN [Concomitant]
     Active Substance: LOSARTAN

REACTIONS (14)
  - Pulmonary congestion [None]
  - Hyperventilation [None]
  - Lactic acidosis [None]
  - Nystagmus [None]
  - Blood creatine phosphokinase increased [None]
  - Hyporeflexia [None]
  - Myopathy [None]
  - Wernicke^s encephalopathy [None]
  - Vitamin B1 deficiency [None]
  - Myalgia [None]
  - Metabolic acidosis [None]
  - Shoshin beriberi [None]
  - Tricuspid valve incompetence [None]
  - Acute kidney injury [None]
